FAERS Safety Report 16763548 (Version 1)
Quarter: 2019Q3

REPORT INFORMATION
  Report Type: Spontaneous
  Country: BE (occurrence: BE)
  Receive Date: 20190902
  Receipt Date: 20190902
  Transmission Date: 20191005
  Serious: Yes (Other)
  Sender: FDA-Public Use
  Company Number: BE-TEVA-2019-BE-1098146

PATIENT
  Age: 87 Year
  Sex: Male
  Weight: 79 kg

DRUGS (18)
  1. CORUNO [Concomitant]
     Active Substance: MOLSIDOMINE
     Dates: start: 20181222
  2. DAFALGAN FORTE [Concomitant]
  3. OMEPRAZOLE. [Concomitant]
     Active Substance: OMEPRAZOLE
     Dates: start: 20100127
  4. TEMESTA [Concomitant]
     Dates: start: 20140705
  5. LOORTAN [Suspect]
     Active Substance: LOSARTAN POTASSIUM
     Indication: HYPERTENSION
     Dosage: 50 MILLIGRAM DAILY;
     Route: 048
     Dates: start: 2002
  6. DAFLON (DIOSMIN/HESPERIDIN) [Suspect]
     Active Substance: DIOSMIN\HESPERIDIN
     Indication: PRODUCT USED FOR UNKNOWN INDICATION
     Dosage: 500 MILLIGRAM DAILY;
     Route: 048
     Dates: start: 19911015
  7. COMBODART [Suspect]
     Active Substance: DUTASTERIDE\TAMSULOSIN
     Indication: BENIGN PROSTATIC HYPERPLASIA
     Dosage: 1 DOSAGE FORMS DAILY; 0.5/0.4 MG - 1 DF
     Route: 048
     Dates: start: 20110316
  8. BRUFEN [Concomitant]
     Active Substance: IBUPROFEN
  9. TRADONAL [Concomitant]
     Active Substance: TRAMADOL HYDROCHLORIDE
  10. ALDACTAZINE [Suspect]
     Active Substance: ALTHIAZIDE\SPIRONOLACTONE
     Indication: HYPERTENSION
     Dosage: 2 DOSAGE FORMS DAILY; 25/15 MG - 1 DF
     Route: 048
     Dates: start: 2005
  11. L-THYROXINE [Suspect]
     Active Substance: LEVOTHYROXINE
     Indication: THYROID DISORDER
     Dosage: 150 MICROGRAM DAILY;
     Route: 048
     Dates: start: 2004
  12. SIMVASTATIN. [Suspect]
     Active Substance: SIMVASTATIN
     Indication: HYPERCHOLESTEROLAEMIA
     Dosage: 20 MILLIGRAM DAILY;
     Route: 048
     Dates: start: 2004
  13. LYRICA [Concomitant]
     Active Substance: PREGABALIN
     Dates: start: 2019
  14. NEBIVOLOL. [Concomitant]
     Active Substance: NEBIVOLOL
     Dates: start: 2018
  15. OXYCODONE SANDOZ [Concomitant]
  16. ZANIDIP [Suspect]
     Active Substance: LERCANIDIPINE HYDROCHLORIDE
     Indication: HYPERTENSION
     Dosage: 10 MILLIGRAM DAILY;
     Route: 048
     Dates: start: 20180910
  17. ASAFLOW [Concomitant]
     Active Substance: ASPIRIN
     Dates: start: 20110625
  18. CALCIUM [Concomitant]
     Active Substance: CALCIUM
     Dates: start: 2015

REACTIONS (1)
  - Basal cell carcinoma [Unknown]
